FAERS Safety Report 9132728 (Version 26)
Quarter: 2022Q3

REPORT INFORMATION
  Report Type: Other
  Country: CA (occurrence: None)
  Receive Date: 20130301
  Receipt Date: 20220902
  Transmission Date: 20221026
  Serious: Yes (Hospitalization, Other)
  Sender: FDA-Public Use
  Company Number: CA-ROCHE-1196189

PATIENT
  Sex: Female
  Weight: 64.9 kg

DRUGS (19)
  1. RITUXAN [Suspect]
     Active Substance: RITUXIMAB
     Indication: Rheumatoid arthritis
     Dosage: DATE OF LAST DOSE OF RITUXIMAB: 12/FEB/2013?DATE OF RECENT DOSE OF RITUXIMAB: 18/APR/2013?DATE OF MO
     Route: 042
     Dates: start: 20120127, end: 20190807
  2. RITUXAN [Suspect]
     Active Substance: RITUXIMAB
     Route: 042
     Dates: start: 20220824
  3. METHOTREXATE [Concomitant]
     Active Substance: METHOTREXATE
  4. METHYLPREDNISOLONE [Concomitant]
     Active Substance: METHYLPREDNISOLONE
     Indication: Premedication
     Route: 042
     Dates: start: 20120127
  5. DIPHENHYDRAMINE HYDROCHLORIDE [Concomitant]
     Active Substance: DIPHENHYDRAMINE HYDROCHLORIDE
     Indication: Premedication
     Route: 048
     Dates: start: 20120127
  6. ACETAMINOPHEN [Concomitant]
     Active Substance: ACETAMINOPHEN
     Indication: Premedication
     Route: 048
     Dates: start: 20120127
  7. PLAQUENIL [Concomitant]
     Active Substance: HYDROXYCHLOROQUINE SULFATE
  8. MELOXICAM [Concomitant]
     Active Substance: MELOXICAM
  9. NEURONTIN [Concomitant]
     Active Substance: GABAPENTIN
  10. TYLENOL [Concomitant]
     Active Substance: ACETAMINOPHEN
  11. OXYCONTIN [Concomitant]
     Active Substance: OXYCODONE HYDROCHLORIDE
     Dosage: SHORT AND LONG ACTING
  12. CORTISONE [Concomitant]
     Active Substance: CORTISONE
  13. LEFLUNOMIDE [Concomitant]
     Active Substance: LEFLUNOMIDE
  14. GABAPENTIN [Concomitant]
     Active Substance: GABAPENTIN
  15. HYDROXYCHLOROQUINE [Concomitant]
     Active Substance: HYDROXYCHLOROQUINE
  16. PREDNISONE [Concomitant]
     Active Substance: PREDNISONE
  17. VIMOVO [Concomitant]
     Active Substance: ESOMEPRAZOLE MAGNESIUM\NAPROXEN
  18. CLONAZEPAM [Concomitant]
     Active Substance: CLONAZEPAM
  19. FOLIC ACID [Concomitant]
     Active Substance: FOLIC ACID

REACTIONS (35)
  - Seizure [Recovered/Resolved]
  - Palpitations [Recovered/Resolved]
  - Road traffic accident [Unknown]
  - Concussion [Unknown]
  - Kidney infection [Recovered/Resolved]
  - Abdominal pain [Recovering/Resolving]
  - Nephrolithiasis [Recovered/Resolved]
  - Chest pain [Recovering/Resolving]
  - Bone development abnormal [Not Recovered/Not Resolved]
  - Vomiting [Not Recovered/Not Resolved]
  - Weight decreased [Not Recovered/Not Resolved]
  - Arthralgia [Not Recovered/Not Resolved]
  - Fatigue [Recovering/Resolving]
  - Rhinitis [Recovered/Resolved]
  - Skin infection [Recovered/Resolved]
  - Vaginal ulceration [Recovering/Resolving]
  - Infusion related reaction [Unknown]
  - Abdominal pain [Not Recovered/Not Resolved]
  - Ear pruritus [Recovered/Resolved]
  - Oral pruritus [Recovered/Resolved]
  - Pruritus [Recovered/Resolved]
  - Contusion [Unknown]
  - Drug hypersensitivity [Unknown]
  - Muscle strain [Recovered/Resolved]
  - Oxygen saturation decreased [Unknown]
  - Blood pressure diastolic abnormal [Unknown]
  - Blood pressure increased [Unknown]
  - Blood urine present [Unknown]
  - Renal pain [Unknown]
  - Fibromyalgia [Recovered/Resolved]
  - Abdominal pain upper [Unknown]
  - Rheumatoid arthritis [Unknown]
  - Chest discomfort [Recovered/Resolved]
  - Throat irritation [Recovered/Resolved]
  - Blood pressure systolic increased [Unknown]

NARRATIVE: CASE EVENT DATE: 20130101
